FAERS Safety Report 18237993 (Version 2)
Quarter: 2020Q4

REPORT INFORMATION
  Report Type: Spontaneous
  Country: US (occurrence: US)
  Receive Date: 20200907
  Receipt Date: 20201005
  Transmission Date: 20210113
  Serious: Yes (Other)
  Sender: FDA-Public Use
  Company Number: US-009507513-2009USA001163

PATIENT
  Age: 74 Year
  Sex: Male

DRUGS (1)
  1. TICE BCG [Suspect]
     Active Substance: BACILLUS CALMETTE-GUERIN SUBSTRAIN TICE LIVE ANTIGEN
     Indication: BLADDER CANCER
     Dosage: 5 OF 6 DOSES
     Route: 043
     Dates: start: 2017

REACTIONS (2)
  - Arthritis bacterial [Unknown]
  - Osteomyelitis bacterial [Unknown]

NARRATIVE: CASE EVENT DATE: 2017
